FAERS Safety Report 16042348 (Version 5)
Quarter: 2019Q2

REPORT INFORMATION
  Report Type: Spontaneous
  Country: DE (occurrence: DE)
  Receive Date: 20190306
  Receipt Date: 20190603
  Transmission Date: 20190711
  Serious: Yes (Hospitalization, Other)
  Sender: FDA-Public Use
  Company Number: DE-IGSA-SR10007935

PATIENT
  Age: 70 Year
  Sex: Male

DRUGS (8)
  1. BETA BLOCKING AGENTS, SELECTIVE [Concomitant]
     Active Substance: UNSPECIFIED INGREDIENT
  2. ASPIRIN                            /00002701/ [Concomitant]
     Active Substance: ASPIRIN
  3. GAMUNEX [Suspect]
     Active Substance: HUMAN IMMUNOGLOBULIN G
     Dosage: UNK ML, UNK
     Route: 042
  4. URAPIDIL [Concomitant]
     Active Substance: URAPIDIL
     Indication: HYPERTENSION
  5. GAMUNEX [Suspect]
     Active Substance: HUMAN IMMUNOGLOBULIN G
     Indication: INCLUSION BODY MYOSITIS
     Dosage: 350 ML, QD
     Route: 042
     Dates: start: 20190109, end: 20190110
  6. GAMUNEX [Suspect]
     Active Substance: HUMAN IMMUNOGLOBULIN G
     Indication: DYSPHAGIA
     Dosage: UNK ML, UNK
     Route: 042
  7. CANDESARTAN. [Concomitant]
     Active Substance: CANDESARTAN
     Indication: HYPERTENSION
  8. GAMUNEX [Suspect]
     Active Substance: HUMAN IMMUNOGLOBULIN G
     Dosage: UNK ML, UNK

REACTIONS (12)
  - Urticaria [Not Recovered/Not Resolved]
  - Rash [Not Recovered/Not Resolved]
  - Nervous system disorder [Recovered/Resolved]
  - Language disorder [Recovered/Resolved]
  - Conjunctivitis [Not Recovered/Not Resolved]
  - Pruritus [Not Recovered/Not Resolved]
  - Alopecia [Recovering/Resolving]
  - Lymphatic disorder [Recovered/Resolved]
  - Skin exfoliation [Not Recovered/Not Resolved]
  - Dysgraphia [Recovered/Resolved]
  - Hypoacusis [Recovered/Resolved]
  - Peripheral coldness [Not Recovered/Not Resolved]

NARRATIVE: CASE EVENT DATE: 2019
